FAERS Safety Report 5494287-4 (Version None)
Quarter: 2007Q4

REPORT INFORMATION
  Report Type: 
  Country: None (occurrence: None)
  Receive Date: 20071015
  Receipt Date: 20070806
  Transmission Date: 20080405
  Serious: No
  Sender: FDA-Public Use
  Company Number: 2007SP002756

PATIENT
  Age: 78 Year
  Sex: Female

DRUGS (3)
  1. LUNESTA [Suspect]
     Dosage: 3 MG;ORAL
     Route: 048
     Dates: start: 20070401
  2. TENEX [Concomitant]
  3. WELLBUTRIN [Concomitant]

REACTIONS (1)
  - DRUG EFFECT DECREASED [None]
